FAERS Safety Report 9788420 (Version 1)
Quarter: 2013Q4

REPORT INFORMATION
  Report Type: Spontaneous
  Country: US (occurrence: US)
  Receive Date: 20131230
  Receipt Date: 20131230
  Transmission Date: 20140711
  Serious: Yes (Other)
  Sender: FDA-Public Use
  Company Number: US-ABBVIE-13P-163-1181384-00

PATIENT
  Age: 70 Year
  Sex: Female
  Weight: 77.18 kg

DRUGS (7)
  1. PROMETRIUM [Suspect]
     Indication: ENDOMETRIAL HYPERPLASIA
     Route: 048
     Dates: start: 1990
  2. PREDNISONE [Suspect]
     Indication: PAIN
     Route: 048
     Dates: start: 201311
  3. PREDNISONE [Suspect]
     Indication: INFLAMMATION
     Route: 048
     Dates: start: 201212
  4. ESTRADIOL [Suspect]
     Indication: MENOPAUSAL SYMPTOMS
  5. CARVEDILOL [Concomitant]
     Indication: HYPERTENSION
  6. BENICAR [Concomitant]
     Indication: HYPERTENSION
  7. HYDROCHLOROTHIAZIDE [Concomitant]
     Indication: FLUID RETENTION

REACTIONS (7)
  - Systemic lupus erythematosus [Not Recovered/Not Resolved]
  - Breast tenderness [Not Recovered/Not Resolved]
  - Weight increased [Not Recovered/Not Resolved]
  - Inflammation [Recovering/Resolving]
  - Pain [Recovering/Resolving]
  - Insomnia [Not Recovered/Not Resolved]
  - Product quality issue [Unknown]
